FAERS Safety Report 18050612 (Version 5)
Quarter: 2021Q4

REPORT INFORMATION
  Report Type: Spontaneous
  Country: JP (occurrence: JP)
  Receive Date: 20200721
  Receipt Date: 20211119
  Transmission Date: 20220303
  Serious: Yes (Hospitalization, Disabling, Other)
  Sender: FDA-Public Use
  Company Number: JP-ELI_LILLY_AND_COMPANY-JP202007005333

PATIENT
  Age: 63 Year
  Sex: Male
  Weight: 74 kg

DRUGS (13)
  1. ALIMTA [Suspect]
     Active Substance: PEMETREXED DISODIUM
     Indication: Lung adenocarcinoma stage III
     Dosage: 950 MG, CYCLICAL
     Route: 041
     Dates: start: 20190807, end: 20190807
  2. ALIMTA [Suspect]
     Active Substance: PEMETREXED DISODIUM
     Dosage: UNK
     Route: 041
     Dates: start: 20191126, end: 20191126
  3. KEYTRUDA [Suspect]
     Active Substance: PEMBROLIZUMAB
     Indication: Lung adenocarcinoma stage III
     Dosage: 200 MG, SINGLE
     Route: 042
     Dates: start: 20190807, end: 20190807
  4. CARBOPLATIN [Suspect]
     Active Substance: CARBOPLATIN
     Indication: Lung adenocarcinoma stage III
     Dosage: 800 MG, SINGLE
     Route: 042
     Dates: start: 20191126, end: 20191126
  5. CARBOPLATIN [Concomitant]
     Active Substance: CARBOPLATIN
     Indication: Lung adenocarcinoma stage III
     Dosage: UNK
     Route: 042
     Dates: start: 20190807
  6. METHYLCOBALAMIN [Concomitant]
     Active Substance: METHYLCOBALAMIN
     Dosage: 1000 UG, CYCLICAL
     Route: 042
     Dates: start: 20190731, end: 20191204
  7. PANVITAN [ASCORBIC ACID;CALCIUM PANTOTHENATE; [Concomitant]
     Dosage: 1 G, DAILY
     Route: 048
     Dates: start: 20190731, end: 20191218
  8. CODEINE PHOSPHATE [Concomitant]
     Active Substance: CODEINE PHOSPHATE
     Dosage: 6 G, DAILY
     Route: 048
  9. BENPROPERINE PHOSPHATE [Concomitant]
     Active Substance: BENPROPERINE PHOSPHATE
     Dosage: 60 MG, DAILY
     Route: 048
  10. NAPROXEN [Concomitant]
     Active Substance: NAPROXEN
     Dosage: 600 MG, DAILY
     Route: 048
  11. VONOPRAZAN [Concomitant]
     Active Substance: VONOPRAZAN
     Dosage: 20 MG, DAILY
     Route: 048
  12. TRAMADOL HYDROCHLORIDE AND ACETAMINOPHEN [Concomitant]
     Active Substance: ACETAMINOPHEN\TRAMADOL HYDROCHLORIDE
     Dosage: 3 DOSAGE FORM, DAILY
     Route: 048
  13. METOCLOPRAMIDE [Concomitant]
     Active Substance: METOCLOPRAMIDE
     Dosage: 15 MG, DAILY
     Route: 048

REACTIONS (6)
  - Pemphigoid [Recovering/Resolving]
  - Malignant neoplasm progression [Unknown]
  - Stevens-Johnson syndrome [Recovering/Resolving]
  - Excessive granulation tissue [Recovering/Resolving]
  - Neutropenia [Recovering/Resolving]
  - Paronychia [Recovering/Resolving]

NARRATIVE: CASE EVENT DATE: 20190814
